FAERS Safety Report 5339763-X (Version None)
Quarter: 2007Q2

REPORT INFORMATION
  Report Type: 
  Country: None (occurrence: None)
  Receive Date: 20070531
  Receipt Date: 20070521
  Transmission Date: 20071010
  Serious: Yes (Other)
  Sender: FDA-Public Use
  Company Number: PHBS2007PL05438

PATIENT
  Age: 11 Year
  Sex: Male
  Weight: 39 kg

DRUGS (2)
  1. TORECAN [Suspect]
     Indication: VOMITING
     Dosage: 6.5 MG, BID
     Route: 048
  2. PLYN FIZJOLOG.WIELOELEKTRO.IZOTON. [Concomitant]

REACTIONS (2)
  - DYSTONIA [None]
  - TORTICOLLIS [None]
